FAERS Safety Report 26107938 (Version 2)
Quarter: 2025Q4

REPORT INFORMATION
  Report Type: Spontaneous
  Country: IN (occurrence: None)
  Receive Date: 20251201
  Receipt Date: 20251221
  Transmission Date: 20260119
  Serious: Yes (Other)
  Sender: INFORLIFE
  Company Number: IN-MLMSERVICE-20251117-PI713813-00099-1

PATIENT
  Age: 14 Year
  Sex: Female

DRUGS (1)
  1. CIPROFLOXACIN [Suspect]
     Active Substance: CIPROFLOXACIN
     Indication: Respiratory tract infection
     Route: 048

REACTIONS (1)
  - Posterior reversible encephalopathy syndrome [Recovered/Resolved]
